FAERS Safety Report 6284136-9 (Version None)
Quarter: 2009Q3

REPORT INFORMATION
  Report Type: 
  Country: None (occurrence: None)
  Receive Date: 20090727
  Receipt Date: 20090715
  Transmission Date: 20100115
  Serious: Yes (Death, Other)
  Sender: FDA-Public Use
  Company Number: GB-RANBAXY-2009RR-25615

PATIENT
  Age: 17 Year
  Sex: Male

DRUGS (6)
  1. FLUCONAZOLE [Suspect]
     Indication: MENINGITIS CRYPTOCOCCAL
     Dosage: 400 MG, QD
     Route: 048
  2. FLUCONAZOLE [Suspect]
     Dosage: 800 MG, QD
  3. FLUCONAZOLE [Suspect]
     Dosage: 400 MG, QD
  4. LAMIVUDINE [Suspect]
     Indication: HIV INFECTION
  5. NEVIRAPINE [Suspect]
     Indication: HIV INFECTION
  6. STAVUDINE [Suspect]
     Indication: HIV INFECTION

REACTIONS (9)
  - BACK PAIN [None]
  - DISSEMINATED CRYPTOCOCCOSIS [None]
  - GRAND MAL CONVULSION [None]
  - HEADACHE [None]
  - IMMUNE RECONSTITUTION SYNDROME [None]
  - MENINGITIS CRYPTOCOCCAL [None]
  - MUSCULAR WEAKNESS [None]
  - NECK PAIN [None]
  - SKIN LESION [None]
